FAERS Safety Report 18714500 (Version 2)
Quarter: 2021Q1

REPORT INFORMATION
  Report Type: Report from Study
  Country: US (occurrence: US)
  Receive Date: 20210108
  Receipt Date: 20210112
  Transmission Date: 20210419
  Serious: No
  Sender: FDA-Public Use
  Company Number: NVSC2021US003074

PATIENT
  Sex: Female

DRUGS (1)
  1. MEKINIST [Suspect]
     Active Substance: TRAMETINIB DIMETHYL SULFOXIDE
     Indication: LANGERHANS^ CELL HISTIOCYTOSIS
     Dosage: 5 MG (DILUTE 0.5MG (1 TABLET) IN 5ML OF CLEAR LIQUID AND ADMINISTER 4ML OF THE SOLUTION (0.4MG) AND
     Route: 048

REACTIONS (3)
  - Wrong technique in product usage process [Unknown]
  - Product use in unapproved indication [Unknown]
  - Somnolence [Not Recovered/Not Resolved]
